FAERS Safety Report 8070671-X (Version None)
Quarter: 2012Q1

REPORT INFORMATION
  Report Type: 
  Country: None (occurrence: None)
  Receive Date: 20120125
  Receipt Date: 20120119
  Transmission Date: 20120608
  Serious: Yes (Hospitalization)
  Sender: FDA-Public Use
  Company Number: PHEH2012US001920

PATIENT
  Age: 3 Year
  Sex: Male
  Weight: 18.141 kg

DRUGS (1)
  1. TOBI [Suspect]
     Dosage: 300 MG, BID
     Dates: start: 20110427

REACTIONS (1)
  - PNEUMOTHORAX [None]
